FAERS Safety Report 21244876 (Version 1)
Quarter: 2022Q3

REPORT INFORMATION
  Report Type: Spontaneous
  Country: US (occurrence: None)
  Receive Date: 20220822
  Receipt Date: 20220822
  Transmission Date: 20221027
  Serious: Yes (Other)
  Sender: FDA-Public Use
  Company Number: None

PATIENT
  Sex: Female

DRUGS (13)
  1. ENBREL [Suspect]
     Active Substance: ETANERCEPT
     Indication: Rheumatoid arthritis
  2. ARMODAFINIL [Concomitant]
     Active Substance: ARMODAFINIL
  3. ARMODAFINIL [Concomitant]
     Active Substance: ARMODAFINIL
  4. DULOXETINE HYDROCHLORIDE [Concomitant]
     Active Substance: DULOXETINE HYDROCHLORIDE
  5. DULOXETINE HYDROCHLORIDE [Concomitant]
     Active Substance: DULOXETINE HYDROCHLORIDE
  6. EZETIMIBE TAB [Concomitant]
  7. HYDROCHLOROTHIAZIDE [Suspect]
     Active Substance: HYDROCHLOROTHIAZIDE
  8. LEVOTHYROXIN TAB [Concomitant]
  9. LORAZEPAM TAB [Concomitant]
  10. METHOCARBAM TAB [Concomitant]
  11. OLMESA MEDOX TAB [Concomitant]
  12. REPATHA PUSH INJ [Concomitant]
  13. REPATHA SURE INJ [Concomitant]

REACTIONS (2)
  - Neck surgery [None]
  - Therapy interrupted [None]
